FAERS Safety Report 14561490 (Version 1)
Quarter: 2018Q1

REPORT INFORMATION
  Report Type: Spontaneous
  Country: DK (occurrence: DK)
  Receive Date: 20180222
  Receipt Date: 20180222
  Transmission Date: 20180509
  Serious: Yes (Life-Threatening, Hospitalization, Other)
  Sender: FDA-Public Use
  Company Number: DK-B.I. PHARMACEUTICALS,INC./RIDGEFIELD-2018-12-000623

PATIENT
  Age: 49 Year
  Sex: Male

DRUGS (10)
  1. ATORVASTATIN ^KRKA^ [Concomitant]
     Active Substance: ATORVASTATIN
     Indication: HYPERCHOLESTEROLAEMIA
     Dosage: STYRKE: 80 MG.
     Route: 048
     Dates: start: 20150616
  2. TRUXAL [Concomitant]
     Active Substance: CHLORPROTHIXENE
     Indication: SEDATIVE THERAPY
     Route: 048
     Dates: start: 20150121
  3. RHINOCORT AQUA [Concomitant]
     Active Substance: BUDESONIDE
     Indication: SEASONAL ALLERGY
     Dosage: 32 MICROGRAM/DOSE, 1 PUFF IN EACH NOSTRIL
     Route: 045
     Dates: start: 20140425
  4. JARDIANCE [Suspect]
     Active Substance: EMPAGLIFLOZIN
     Indication: TYPE 2 DIABETES MELLITUS
     Route: 048
     Dates: start: 20170912, end: 20171108
  5. RISPERIDON ^ACTAVIS^ [Concomitant]
     Indication: MENTAL DISORDER
     Route: 048
     Dates: start: 20140819
  6. METFORMIN ^ACTAVIS^ [Concomitant]
     Indication: TYPE 2 DIABETES MELLITUS
     Route: 048
     Dates: start: 20150616
  7. HJERTEMAGNYL [Concomitant]
     Active Substance: ASPIRIN\MAGNESIUM OXIDE
     Indication: THROMBOSIS PROPHYLAXIS
     Route: 048
     Dates: start: 20140924
  8. RIVOTRIL [Concomitant]
     Active Substance: CLONAZEPAM
     Indication: EPILEPSY
     Dosage: 1 TAB PER NEED, MAX 2 TIMES DAILY
     Route: 048
     Dates: start: 20140410
  9. CETIRIZIN ^ACTAVIS^ [Concomitant]
     Active Substance: CETIRIZINE HYDROCHLORIDE
     Indication: SEASONAL ALLERGY
     Dosage: 1 TAB PER NEED, MAX 1 TIME A DAY
     Route: 048
     Dates: start: 20140130
  10. CITALOPRAM [Concomitant]
     Active Substance: CITALOPRAM HYDROBROMIDE
     Indication: DEPRESSION
     Dosage: STYRKE: 40 MG.
     Route: 048
     Dates: start: 20151202

REACTIONS (1)
  - Diabetic ketoacidosis [Recovering/Resolving]

NARRATIVE: CASE EVENT DATE: 20171104
